FAERS Safety Report 16993747 (Version 1)
Quarter: 2019Q4

REPORT INFORMATION
  Report Type: Spontaneous
  Country: FR (occurrence: FR)
  Receive Date: 20191105
  Receipt Date: 20191105
  Transmission Date: 20200122
  Serious: Yes (Other)
  Sender: FDA-Public Use
  Company Number: FR-PFIZER INC-2019473241

PATIENT
  Age: 25 Year
  Sex: Male

DRUGS (1)
  1. LYRICA [Suspect]
     Active Substance: PREGABALIN
     Dosage: 900 MG, 1X/DAY
     Route: 065

REACTIONS (2)
  - Drug use disorder [Not Recovered/Not Resolved]
  - Overdose [Unknown]
